FAERS Safety Report 15790546 (Version 1)
Quarter: 2019Q1

REPORT INFORMATION
  Report Type: Spontaneous
  Country: ES (occurrence: ES)
  Receive Date: 20190104
  Receipt Date: 20190104
  Transmission Date: 20190417
  Serious: Yes (Hospitalization, Other)
  Sender: FDA-Public Use
  Company Number: ES-BAYER-2019-000682

PATIENT
  Age: 56 Year
  Sex: Male

DRUGS (9)
  1. STIVARGA [Suspect]
     Active Substance: REGORAFENIB
     Indication: COLORECTAL CANCER METASTATIC
     Dosage: 160 MG/DAY FOR 21 DAYS EVERY 28 DAYS
     Dates: start: 20131122, end: 201708
  2. THYROXINE [Concomitant]
     Active Substance: LEVOTHYROXINE
     Dosage: 12,5 ?G/DAY
  3. AMPHOTERICIN B. [Concomitant]
     Active Substance: AMPHOTERICIN B
     Dosage: 1 MG/KG/DAY
  4. IRBESARTAN. [Concomitant]
     Active Substance: IRBESARTAN
     Indication: HYPERTENSION
     Dosage: 75 MG/DAY
  5. CARVEDILOL. [Concomitant]
     Active Substance: CARVEDILOL
     Indication: HYPERTENSION
     Dosage: 25 MG, QD
  6. VORICONAZOLE. [Concomitant]
     Active Substance: VORICONAZOLE
     Dosage: 200 MG/12 H
  7. IRBESARTAN. [Concomitant]
     Active Substance: IRBESARTAN
     Indication: HYPERTENSION
     Dosage: 150 MG, QD
  8. VORICONAZOLE. [Concomitant]
     Active Substance: VORICONAZOLE
     Dosage: 400 MG/12 H ON 1RST DAY AND THEN 200 MG/12 H ORALLY, FOR 30 DAYS,
  9. CASPOFUNGIN [Concomitant]
     Active Substance: CASPOFUNGIN
     Dosage: 70 MG/DAY
     Route: 042

REACTIONS (12)
  - Pneumonia [None]
  - Pneumonitis [None]
  - Dysphonia [None]
  - Metastases to lung [None]
  - Pyrexia [None]
  - Metastases to the mediastinum [None]
  - Superinfection bacterial [None]
  - Asthenia [None]
  - Aspergillus test positive [None]
  - Headache [None]
  - Palmar-plantar erythrodysaesthesia syndrome [None]
  - Primary hypothyroidism [None]

NARRATIVE: CASE EVENT DATE: 201506
